FAERS Safety Report 12329508 (Version 1)
Quarter: 2016Q2

REPORT INFORMATION
  Report Type: Report from Study
  Country: US (occurrence: US)
  Receive Date: 20160503
  Receipt Date: 20160503
  Transmission Date: 20160815
  Serious: Yes (Other)
  Sender: FDA-Public Use
  Company Number: US-ABBVIE-16P-163-1615197-00

PATIENT
  Sex: Male

DRUGS (2)
  1. DEPAKOTE ER [Suspect]
     Active Substance: DIVALPROEX SODIUM
     Indication: MIGRAINE
     Route: 065
  2. SYNTHROID [Concomitant]
     Active Substance: LEVOTHYROXINE SODIUM
     Indication: PRODUCT USED FOR UNKNOWN INDICATION

REACTIONS (9)
  - Abdominal pain [Unknown]
  - Generalised tonic-clonic seizure [Unknown]
  - Hypothyroidism [Unknown]
  - Barotitis media [Unknown]
  - Oropharyngeal pain [Unknown]
  - Amnesia [Unknown]
  - Folliculitis [Unknown]
  - Viral upper respiratory tract infection [Unknown]
  - Rash [Unknown]
